FAERS Safety Report 19257635 (Version 1)
Quarter: 2021Q2

REPORT INFORMATION
  Report Type: Other
  Country: FR (occurrence: FR)
  Receive Date: 20210514
  Receipt Date: 20210514
  Transmission Date: 20210717
  Serious: Yes (Other)
  Sender: FDA-Public Use
  Company Number: FR-CADILA HEALTHCARE LIMITED-FR-ZYDUS-065530

PATIENT

DRUGS (6)
  1. LORLATINIB [Suspect]
     Active Substance: LORLATINIB
     Indication: LUNG NEOPLASM MALIGNANT
     Dosage: 75 MILLIGRAM, QD
     Route: 048
     Dates: start: 20190329
  2. ATORVASTATIN [Suspect]
     Active Substance: ATORVASTATIN
     Indication: HYPERCHOLESTEROLAEMIA
     Dosage: 20 MILLIGRAM, QD
     Route: 048
  3. AVASTIN [Suspect]
     Active Substance: BEVACIZUMAB
     Indication: CENTRAL NERVOUS SYSTEM LESION
     Dosage: 505 MILLIGRAM IN 4 WEEKS
     Route: 042
     Dates: start: 20171208, end: 20181224
  4. VIMPAT [Suspect]
     Active Substance: LACOSAMIDE
     Indication: CENTRAL NERVOUS SYSTEM LESION
     Dosage: 2 DOSAGE FORM, QD
     Route: 048
  5. LASILIX [FUROSEMIDE] [Suspect]
     Active Substance: FUROSEMIDE
     Indication: PRODUCT USED FOR UNKNOWN INDICATION
     Dosage: 1 DOSAGE FORM, QD
     Route: 048
  6. ALIMTA [Suspect]
     Active Substance: PEMETREXED DISODIUM
     Indication: LUNG NEOPLASM MALIGNANT
     Dosage: 690 MILLIGRAM IN 4 WEEKS
     Route: 042
     Dates: start: 20171208, end: 20190226

REACTIONS (2)
  - Thrombotic microangiopathy [Not Recovered/Not Resolved]
  - Focal segmental glomerulosclerosis [Not Recovered/Not Resolved]

NARRATIVE: CASE EVENT DATE: 20210329
